FAERS Safety Report 4952284-9 (Version None)
Quarter: 2006Q1

REPORT INFORMATION
  Report Type: 
  Country: None (occurrence: None)
  Receive Date: 20060320
  Receipt Date: 20060309
  Transmission Date: 20060701
  Serious: Yes (Hospitalization)
  Sender: FDA-Public Use
  Company Number: 207603

PATIENT
  Age: 74 Year
  Sex: Female
  Weight: 54.4 kg

DRUGS (1)
  1. AVASTIN [Suspect]
     Indication: COLORECTAL CANCER METASTATIC
     Dosage: 5 MG/KG, Q2W, INTRAVENOUS
     Route: 042
     Dates: start: 20040521, end: 20040607

REACTIONS (3)
  - BILIARY DILATATION [None]
  - GASTROENTERITIS [None]
  - PYREXIA [None]
